FAERS Safety Report 4480285-6 (Version None)
Quarter: 2004Q3

REPORT INFORMATION
  Report Type: 
  Country: None (occurrence: None)
  Receive Date: 20040923
  Receipt Date: 20040520
  Transmission Date: 20050211
  Serious: No
  Sender: FDA-Public Use
  Company Number: USA040566737

PATIENT
  Age: 83 Year
  Sex: Female
  Weight: 82 kg

DRUGS (4)
  1. FORTEO [Suspect]
     Indication: OSTEOPOROSIS
     Dosage: 20 UG
     Dates: start: 20040101
  2. PLAVIX [Concomitant]
  3. NEXIUM [Concomitant]
  4. MULTIVITAMIN [Concomitant]

REACTIONS (2)
  - FEELING ABNORMAL [None]
  - PALPITATIONS [None]
